FAERS Safety Report 8938422 (Version 1)
Quarter: 2012Q4

REPORT INFORMATION
  Report Type: 
  Country: JP (occurrence: JP)
  Receive Date: 20121130
  Receipt Date: 20121130
  Transmission Date: 20130627
  Serious: Yes (Death, Other)
  Sender: FDA-Public Use
  Company Number: JP-ACTELION-A-CH2012-75302

PATIENT
  Age: 34 Year
  Sex: Female

DRUGS (4)
  1. TRACLEER [Suspect]
     Indication: PULMONARY ARTERIAL HYPERTENSION
     Route: 048
  2. BERAPROST [Concomitant]
  3. SILDENAFIL [Concomitant]
  4. EPOPROSTENOL [Concomitant]
     Dosage: UNK
     Dates: start: 2009

REACTIONS (12)
  - Ascites [Fatal]
  - Gastrointestinal haemorrhage [Fatal]
  - Right ventricular failure [Fatal]
  - Drug ineffective [Unknown]
  - Arteriovenous fistula [Unknown]
  - Portal hypertension [Unknown]
  - Intrahepatic portal hepatic venous fistula [None]
  - Treatment failure [None]
  - Pulmonary fibrosis [None]
  - Hepatic neoplasm [None]
  - Hepatic fibrosis [None]
  - Hepatic arteriovenous malformation [None]
